FAERS Safety Report 22140731 (Version 1)
Quarter: 2023Q1

REPORT INFORMATION
  Report Type: Spontaneous
  Country: None (occurrence: FR)
  Receive Date: 20230327
  Receipt Date: 20230327
  Transmission Date: 20230417
  Serious: Yes (Death, Other)
  Sender: FDA-Public Use
  Company Number: FR-B.Braun Medical Inc.-2139563

PATIENT
  Age: 49 Year
  Sex: Male

DRUGS (3)
  1. ACETAMINOPHEN [Suspect]
     Active Substance: ACETAMINOPHEN
  2. ASPIRIN [Suspect]
     Active Substance: ASPIRIN
  3. DOXYLAMINE [Suspect]
     Active Substance: DOXYLAMINE

REACTIONS (1)
  - Death [Fatal]
